FAERS Safety Report 16107987 (Version 3)
Quarter: 2019Q2

REPORT INFORMATION
  Report Type: Spontaneous
  Country: LB (occurrence: LB)
  Receive Date: 20190322
  Receipt Date: 20190409
  Transmission Date: 20190711
  Serious: Yes (Other)
  Sender: FDA-Public Use
  Company Number: PHHY2019LB061168

PATIENT
  Age: 60 Year
  Sex: Female
  Weight: 70 kg

DRUGS (1)
  1. TRAMETINIB [Suspect]
     Active Substance: TRAMETINIB
     Indication: METASTATIC MALIGNANT MELANOMA
     Dosage: 2 MG, UNK
     Route: 048
     Dates: start: 20190201

REACTIONS (8)
  - Swelling face [Not Recovered/Not Resolved]
  - Eye swelling [Unknown]
  - Swelling face [Recovered/Resolved]
  - Flushing [Unknown]
  - Rash [Unknown]
  - Erythema [Recovered/Resolved]
  - Swelling of eyelid [Unknown]
  - Pruritus [Unknown]

NARRATIVE: CASE EVENT DATE: 20190226
